FAERS Safety Report 10768629 (Version 1)
Quarter: 2015Q1

REPORT INFORMATION
  Report Type: Spontaneous
  Country: US (occurrence: None)
  Receive Date: 20150204
  Receipt Date: 20150204
  Transmission Date: 20150721
  Serious: Yes (Hospitalization, Other)
  Sender: FDA-Public Use
  Company Number: KR-ZYDUS-006478

PATIENT
  Age: 67 Year
  Sex: Female

DRUGS (3)
  1. ASPIRIN (ASPIRIN) [Suspect]
     Active Substance: ASPIRIN
  2. ALL OTHER THERAPEUTIC PRODUCTS [Suspect]
     Active Substance: UNSPECIFIED INGREDIENT
  3. CLOPIDOGREL [Suspect]
     Active Substance: CLOPIDOGREL BISULFATE

REACTIONS (4)
  - Vasogenic cerebral oedema [None]
  - Blood pressure abnormal [None]
  - Epilepsy [None]
  - Cerebral hyperperfusion syndrome [None]
